FAERS Safety Report 5325687-0 (Version None)
Quarter: 2007Q2

REPORT INFORMATION
  Report Type: 
  Country: None (occurrence: None)
  Receive Date: 20070515
  Receipt Date: 20070503
  Transmission Date: 20071010
  Serious: Yes (Hospitalization, Other)
  Sender: FDA-Public Use
  Company Number: TW-PFIZER INC-2007037021

PATIENT
  Age: 34 Year
  Sex: Female

DRUGS (3)
  1. GABAPENTIN [Suspect]
     Indication: EPILEPSY
     Dosage: DAILY DOSE:5400MG
  2. DEPARKIN [Concomitant]
  3. SABRIL [Concomitant]

REACTIONS (6)
  - ACCIDENTAL OVERDOSE [None]
  - CEREBRAL ATROPHY [None]
  - CEREBRAL VENTRICLE DILATATION [None]
  - COMA [None]
  - DRUG PRESCRIBING ERROR [None]
  - STATUS EPILEPTICUS [None]
